FAERS Safety Report 10072796 (Version 1)
Quarter: 2014Q2

REPORT INFORMATION
  Report Type: Spontaneous
  Country: US (occurrence: US)
  Receive Date: 20140411
  Receipt Date: 20140411
  Transmission Date: 20141212
  Serious: No
  Sender: FDA-Public Use
  Company Number: US-MYLANLABS-2013S1007917

PATIENT
  Age: 81 Year
  Sex: Male
  Weight: 76.2 kg

DRUGS (3)
  1. DILTIAZEM HCL EXTENDED RELEASE CAPSULES, USP [Suspect]
     Route: 048
     Dates: start: 201304
  2. DILANTIN [Concomitant]
     Indication: CONVULSION
     Route: 048
  3. LOSARTAN [Concomitant]
     Route: 048

REACTIONS (2)
  - Dizziness [Not Recovered/Not Resolved]
  - Feeling jittery [Not Recovered/Not Resolved]
